FAERS Safety Report 16363913 (Version 2)
Quarter: 2019Q2

REPORT INFORMATION
  Report Type: Spontaneous
  Country: JP (occurrence: JP)
  Receive Date: 20190528
  Receipt Date: 20190618
  Transmission Date: 20190711
  Serious: Yes (Hospitalization, Other)
  Sender: FDA-Public Use
  Company Number: JP-ELI_LILLY_AND_COMPANY-JP201903009089

PATIENT
  Age: 71 Year
  Sex: Male
  Weight: 54 kg

DRUGS (7)
  1. ERBITUX [Suspect]
     Active Substance: CETUXIMAB
     Indication: HYPOPHARYNGEAL CANCER
     Dosage: UNK UNK, UNKNOWN
     Route: 041
     Dates: start: 20190215, end: 20190215
  2. NEXIUM 24HR [Concomitant]
     Active Substance: ESOMEPRAZOLE MAGNESIUM
     Indication: GASTROOESOPHAGEAL REFLUX DISEASE
     Dosage: 20 MG, DAILY
     Route: 048
     Dates: start: 20190308, end: 20190405
  3. ERBITUX [Suspect]
     Active Substance: CETUXIMAB
     Dosage: 380 MG, UNKNOWN
     Route: 041
     Dates: start: 20190222, end: 20190308
  4. COCARL [Concomitant]
     Active Substance: ACETAMINOPHEN
     Indication: PAIN
     Dosage: 400 MG, EVERY 8 HRS
     Route: 048
     Dates: start: 20190308, end: 20190312
  5. MINOMYCIN [Concomitant]
     Active Substance: MINOCYCLINE HYDROCHLORIDE
     Indication: PROPHYLAXIS
     Dosage: 100 MG, BID
     Route: 048
     Dates: start: 20190301, end: 20190312
  6. POLARAMINE [Concomitant]
     Active Substance: DEXCHLORPHENIRAMINE MALEATE
     Indication: PROPHYLAXIS
     Dosage: 5 MG, WEEKLY (1/W)
     Route: 041
     Dates: start: 20190215, end: 20190308
  7. DECADRON S [Concomitant]
     Indication: PROPHYLAXIS
     Dosage: 6.6 MG, WEEKLY (1/W)
     Route: 041
     Dates: start: 20190215, end: 20190308

REACTIONS (4)
  - C-reactive protein increased [Recovering/Resolving]
  - Oropharyngeal pain [Unknown]
  - Aspartate aminotransferase increased [Recovering/Resolving]
  - Interstitial lung disease [Recovering/Resolving]

NARRATIVE: CASE EVENT DATE: 20190301
